FAERS Safety Report 17805211 (Version 1)
Quarter: 2020Q2

REPORT INFORMATION
  Report Type: Spontaneous
  Country: US (occurrence: US)
  Receive Date: 20200519
  Receipt Date: 20200519
  Transmission Date: 20200714
  Serious: Yes (Hospitalization, Disabling, Other)
  Sender: FDA-Public Use
  Company Number: US-GILEAD-2020-0467226

PATIENT
  Age: 71 Year
  Sex: Female
  Weight: 74.38 kg

DRUGS (3)
  1. FLUDARABINE [Suspect]
     Active Substance: FLUDARABINE PHOSPHATE
     Indication: PRODUCT USED FOR UNKNOWN INDICATION
     Dosage: 58 MG, QD; 30 MG/M2
     Route: 065
     Dates: start: 20200219, end: 20200221
  2. ACYCLOVIR [ACICLOVIR] [Concomitant]
     Active Substance: ACYCLOVIR
  3. YESCARTA [Suspect]
     Active Substance: AXICABTAGENE CILOLEUCEL
     Indication: B-CELL LYMPHOMA REFRACTORY
     Dosage: 1 DOSAGE FORM, ONCE
     Route: 042
     Dates: start: 20200224, end: 20200224

REACTIONS (11)
  - Toxic optic neuropathy [Not Recovered/Not Resolved]
  - Leukopenia [Unknown]
  - Fall [Unknown]
  - Cytokine release syndrome [Recovered/Resolved]
  - Blindness [Not Recovered/Not Resolved]
  - Neurotoxicity [Recovered/Resolved]
  - Adrenal insufficiency [Unknown]
  - Mental status changes [Unknown]
  - Asthenia [Unknown]
  - Thrombocytopenia [Unknown]
  - Vision blurred [Not Recovered/Not Resolved]

NARRATIVE: CASE EVENT DATE: 20200329
